FAERS Safety Report 9303972 (Version 1)
Quarter: 2013Q2

REPORT INFORMATION
  Report Type: Spontaneous
  Country: IT (occurrence: IT)
  Receive Date: 20130522
  Receipt Date: 20130522
  Transmission Date: 20140414
  Serious: Yes (Other)
  Sender: FDA-Public Use
  Company Number: PHHY2013IT049624

PATIENT
  Sex: Male

DRUGS (5)
  1. LEVOFLOXACIN [Suspect]
     Indication: RESPIRATORY TRACT INFECTION
     Dosage: 500 MG, QD
     Dates: start: 20120703, end: 20120717
  2. LEVOTHYROXINE [Concomitant]
  3. ESOMEPRAZOLE [Concomitant]
  4. FUROSEMIDE [Concomitant]
  5. WARFARIN [Concomitant]

REACTIONS (6)
  - Aggression [Unknown]
  - Coprolalia [Unknown]
  - Suicide attempt [Unknown]
  - Depression [Unknown]
  - Insomnia [Unknown]
  - Restlessness [Unknown]
